FAERS Safety Report 15783118 (Version 1)
Quarter: 2019Q1

REPORT INFORMATION
  Report Type: Report from Study
  Country: ES (occurrence: ES)
  Receive Date: 20190102
  Receipt Date: 20190102
  Transmission Date: 20190417
  Serious: Yes (Hospitalization)
  Sender: FDA-Public Use
  Company Number: ES-MYLANLABS-2018M1051080

PATIENT
  Age: 81 Year
  Sex: Female

DRUGS (6)
  1. SERTRALINE [Suspect]
     Active Substance: SERTRALINE HYDROCHLORIDE
     Indication: ANXIETY
     Dosage: 50 MILLIGRAM, QD
     Route: 048
     Dates: start: 20160226
  2. LORAZEPAM. [Concomitant]
     Active Substance: LORAZEPAM
     Indication: ANXIETY
     Dosage: 1 MG CENA
     Route: 048
  3. PRAVASTATINA                       /00880401/ [Concomitant]
     Indication: DYSLIPIDAEMIA
     Dosage: 0-0-1
     Route: 048
     Dates: start: 20061103
  4. HIDROSALURETIL [Interacting]
     Active Substance: HYDROCHLOROTHIAZIDE
     Indication: HYPERTENSION
     Dosage: 1/2 CP
     Route: 048
     Dates: start: 20150128, end: 20170615
  5. LOSARTAN. [Concomitant]
     Active Substance: LOSARTAN
     Indication: HYPERTENSION
     Dosage: 1-0-0
     Route: 048
     Dates: start: 20150128
  6. AMLODIPINO                         /00972401/ [Concomitant]
     Active Substance: AMLODIPINE BESYLATE
     Indication: HYPERTENSION
     Dosage: 1-0-0
     Route: 048
     Dates: start: 20151007

REACTIONS (2)
  - Drug interaction [Unknown]
  - Inappropriate antidiuretic hormone secretion [Recovered/Resolved]

NARRATIVE: CASE EVENT DATE: 20170615
